FAERS Safety Report 4705089-8 (Version None)
Quarter: 2005Q2

REPORT INFORMATION
  Report Type: 
  Country: None (occurrence: None)
  Receive Date: 20050629
  Receipt Date: 20050617
  Transmission Date: 20051028
  Serious: Yes (Other)
  Sender: FDA-Public Use
  Company Number: 2005090547

PATIENT
  Age: 79 Year
  Sex: Male
  Weight: 90.7194 kg

DRUGS (10)
  1. NEURONTIN [Suspect]
     Indication: NEUROPATHY
     Dosage: ORAL
     Route: 048
     Dates: start: 20000101
  2. DIGOXIN [Concomitant]
  3. PRINIVIL [Concomitant]
  4. SYNTHROID [Concomitant]
  5. TOPROL (METOPROLOL) [Concomitant]
  6. TAMSULOSIN HCL [Concomitant]
  7. LASIX [Concomitant]
  8. PLAVIX [Concomitant]
  9. ASPIRIN [Concomitant]
  10. NITROGLYCERIN [Concomitant]

REACTIONS (12)
  - BLOOD CHOLESTEROL INCREASED [None]
  - CARDIAC DISORDER [None]
  - CARDIAC PACEMAKER REPLACEMENT [None]
  - CHEST PAIN [None]
  - COUGH [None]
  - DRUG DOSE OMISSION [None]
  - IMPLANTABLE DEFIBRILLATOR INSERTION [None]
  - MEDICAL DEVICE COMPLICATION [None]
  - PNEUMONIA [None]
  - THERAPY NON-RESPONDER [None]
  - TREATMENT NONCOMPLIANCE [None]
  - VASCULAR OCCLUSION [None]
